FAERS Safety Report 7995953-9 (Version None)
Quarter: 2011Q4

REPORT INFORMATION
  Report Type: 
  Country: None (occurrence: None)
  Receive Date: 20111220
  Receipt Date: 20111215
  Transmission Date: 20120403
  Serious: Yes (Other)
  Sender: FDA-Public Use
  Company Number: US-PERRIGO-11US009687

PATIENT
  Sex: Male
  Weight: 43.991 kg

DRUGS (1)
  1. CHILDREN'S IBUPROFEN [Suspect]
     Indication: PRODUCT USED FOR UNKNOWN INDICATION
     Dosage: 15 ML, SINGLE
     Route: 048
     Dates: start: 20111102, end: 20111102

REACTIONS (4)
  - HYPERSENSITIVITY [None]
  - THROAT TIGHTNESS [None]
  - WHEEZING [None]
  - EYE SWELLING [None]
